FAERS Safety Report 25580205 (Version 1)
Quarter: 2025Q3

REPORT INFORMATION
  Report Type: Spontaneous
  Country: US (occurrence: US)
  Receive Date: 20250718
  Receipt Date: 20250718
  Transmission Date: 20251020
  Serious: No
  Sender: NOVO NORDISK
  Company Number: US-NOVOPROD-1444440

PATIENT
  Age: 70 Year
  Sex: Female

DRUGS (1)
  1. WEGOVY [Suspect]
     Active Substance: SEMAGLUTIDE
     Indication: Cardiac disorder
     Dosage: 0.25 MG, QW
     Dates: start: 20250406

REACTIONS (5)
  - Rhinorrhoea [Unknown]
  - Constipation [Unknown]
  - Product use in unapproved indication [Unknown]
  - Wrong technique in product usage process [Not Recovered/Not Resolved]
  - Device leakage [Not Recovered/Not Resolved]

NARRATIVE: CASE EVENT DATE: 20250413
